FAERS Safety Report 11335405 (Version 1)
Quarter: 2015Q3

REPORT INFORMATION
  Report Type: Spontaneous
  Country: FR (occurrence: FR)
  Receive Date: 20150804
  Receipt Date: 20150804
  Transmission Date: 20151125
  Serious: Yes (Hospitalization)
  Sender: FDA-Public Use
  Company Number: FR-AUROBINDO-AUR-APL-2015-06570

PATIENT
  Age: 3 Year
  Sex: Male

DRUGS (2)
  1. CEFPODOXIME ARROW [Suspect]
     Active Substance: CEFPODOXIME
     Indication: LARYNGITIS
     Dosage: 40 MG, TWO TIMES A DAY
     Route: 048
     Dates: start: 20150302, end: 20150304
  2. SOLUPRED                           /00016201/ [Concomitant]
     Active Substance: PREDNISOLONE
     Indication: PRODUCT USED FOR UNKNOWN INDICATION
     Dosage: UNK
     Route: 048
     Dates: start: 20150302, end: 20150303

REACTIONS (11)
  - Hyponatraemia [Recovered/Resolved]
  - Protein total abnormal [Recovered/Resolved]
  - Diarrhoea [Recovered/Resolved]
  - Blood bicarbonate abnormal [Recovered/Resolved]
  - Clostridium difficile colitis [Recovered/Resolved]
  - Abdominal distension [Recovered/Resolved]
  - Vomiting [Recovered/Resolved]
  - Blood calcium decreased [Recovered/Resolved]
  - Diarrhoea haemorrhagic [Recovered/Resolved]
  - Hypophagia [Recovered/Resolved]
  - Blood chloride decreased [Recovered/Resolved]

NARRATIVE: CASE EVENT DATE: 20150304
